FAERS Safety Report 15944352 (Version 3)
Quarter: 2019Q1

REPORT INFORMATION
  Report Type: Report from Study
  Country: IT (occurrence: IT)
  Receive Date: 20190211
  Receipt Date: 20190311
  Transmission Date: 20190417
  Serious: Yes (Hospitalization)
  Sender: FDA-Public Use
  Company Number: IT-TEVA-2019-IT-1009315

PATIENT
  Age: 83 Year
  Sex: Female

DRUGS (1)
  1. TICLOPIDINE [Suspect]
     Active Substance: TICLOPIDINE
     Indication: ISCHAEMIC STROKE
     Dosage: 250 MILLIGRAM DAILY;
     Route: 048
     Dates: start: 20050101, end: 20190121

REACTIONS (5)
  - Ischaemic stroke [Unknown]
  - Monoparesis [Unknown]
  - Therapeutic response shortened [Unknown]
  - Dysarthria [Unknown]
  - Hemianopia [Unknown]

NARRATIVE: CASE EVENT DATE: 20190121
